FAERS Safety Report 11160488 (Version 1)
Quarter: 2015Q2

REPORT INFORMATION
  Report Type: Spontaneous
  Country: US (occurrence: US)
  Receive Date: 20150604
  Receipt Date: 20150604
  Transmission Date: 20150821
  Serious: No
  Sender: FDA-Public Use
  Company Number: US-SA-2014SA060130

PATIENT
  Age: 80 Year
  Sex: Male

DRUGS (8)
  1. LANTUS SOLOSTAR [Suspect]
     Active Substance: INSULIN GLARGINE
     Indication: TYPE 2 DIABETES MELLITUS
     Dosage: PRODUCT START DATE: 7-8 YEARS DOSE:10 UNIT(S)
     Route: 065
  2. HUMALOG [Concomitant]
     Active Substance: INSULIN LISPRO
  3. LANTUS SOLOSTAR [Suspect]
     Active Substance: INSULIN GLARGINE
     Indication: TYPE 2 DIABETES MELLITUS
     Dosage: PRODUCT START DATE: 7-8 YEARS DOSE:50 UNIT(S)
     Route: 065
  4. LANTUS SOLOSTAR [Suspect]
     Active Substance: INSULIN GLARGINE
     Indication: TYPE 2 DIABETES MELLITUS
     Dosage: PRODUCT START DATE: 7-8 YEARS DOSE:50 UNIT(S)
     Route: 065
  5. SOLOSTAR [Concomitant]
     Active Substance: DEVICE
  6. HUMALOG [Concomitant]
     Active Substance: INSULIN LISPRO
     Dosage: DOSE:5 UNIT(S)
  7. LANTUS SOLOSTAR [Suspect]
     Active Substance: INSULIN GLARGINE
     Indication: TYPE 2 DIABETES MELLITUS
     Dosage: PRODUCT START DATE: 7-8 YEARS DOSE:25 UNIT(S)
     Route: 065
  8. LANTUS SOLOSTAR [Suspect]
     Active Substance: INSULIN GLARGINE
     Indication: TYPE 2 DIABETES MELLITUS
     Dosage: PRODUCT START DATE: 7-8 YEARS
     Route: 065

REACTIONS (6)
  - Blood glucose abnormal [Unknown]
  - Blood glucose decreased [Unknown]
  - Asthenia [Unknown]
  - Diarrhoea [Unknown]
  - Somnolence [Unknown]
  - Off label use [Unknown]
